FAERS Safety Report 6562762-7 (Version None)
Quarter: 2010Q1

REPORT INFORMATION
  Report Type: 
  Country: None (occurrence: None)
  Receive Date: 20100130
  Receipt Date: 20091111
  Transmission Date: 20100710
  Serious: No
  Sender: FDA-Public Use
  Company Number: US-ABBOTT-09P-163-0610319-00

PATIENT
  Sex: Male
  Weight: 97.61 kg

DRUGS (2)
  1. HUMIRA [Suspect]
     Indication: CROHN'S DISEASE
     Route: 058
     Dates: start: 20050101
  2. HUMIRA [Suspect]
     Route: 058
     Dates: start: 20050101, end: 20050101

REACTIONS (3)
  - ANIMAL BITE [None]
  - DRUG EFFECT DECREASED [None]
  - URTICARIA [None]
